FAERS Safety Report 12795577 (Version 4)
Quarter: 2016Q4

REPORT INFORMATION
  Report Type: Spontaneous
  Country: US (occurrence: US)
  Receive Date: 20160929
  Receipt Date: 20161017
  Transmission Date: 20170207
  Serious: No
  Sender: FDA-Public Use
  Company Number: US-PFIZER INC-2016456389

PATIENT
  Age: 47 Year
  Sex: Male
  Weight: 95 kg

DRUGS (2)
  1. VIAGRA [Suspect]
     Active Substance: SILDENAFIL CITRATE
     Indication: ERECTILE DYSFUNCTION
     Dosage: 75 MG, DAILY
     Dates: start: 201606
  2. VIAGRA [Suspect]
     Active Substance: SILDENAFIL CITRATE
     Dosage: 50 MG, UNK
     Route: 048
     Dates: start: 20160815

REACTIONS (2)
  - Ejaculation disorder [Unknown]
  - Erection increased [Unknown]

NARRATIVE: CASE EVENT DATE: 20160820
